FAERS Safety Report 9441859 (Version 3)
Quarter: 2013Q3

REPORT INFORMATION
  Report Type: Spontaneous
  Country: BR (occurrence: BR)
  Receive Date: 20130806
  Receipt Date: 20130917
  Transmission Date: 20140515
  Serious: Yes (Hospitalization, Other)
  Sender: FDA-Public Use
  Company Number: BR-ASTRAZENECA-2013SE58920

PATIENT
  Age: 70 Year
  Sex: Female
  Weight: 79 kg

DRUGS (10)
  1. SELOZOK [Suspect]
     Indication: HYPERTENSION
     Dosage: EVERY MORNING
     Route: 048
     Dates: start: 2010
  2. CRESTOR [Suspect]
     Indication: BLOOD CHOLESTEROL INCREASED
     Dosage: DAILY
     Route: 048
  3. CRESTOR [Suspect]
     Indication: CAROTID ARTERY OCCLUSION
     Dosage: DAILY
     Route: 048
  4. BRILINTA [Suspect]
     Indication: ARTERIOSCLEROSIS CORONARY ARTERY
     Dosage: TWO TIMES A DAY
     Route: 048
     Dates: start: 20130725
  5. SOMALGIN CARDIO [Concomitant]
     Indication: CAROTID ARTERY OCCLUSION
     Dosage: UNKNOWN
  6. BROMAZEPAM [Concomitant]
     Indication: ANXIETY
     Dosage: UNKNOWN
  7. OMEGA 3 [Concomitant]
  8. DIOVAN [Concomitant]
     Indication: HYPERTENSION
     Dosage: UNKNOWN
  9. UNSPECIFIED MEDICATION [Concomitant]
     Indication: BLOOD CHOLESTEROL INCREASED
  10. PLAVIX [Concomitant]
     Dates: start: 2005

REACTIONS (5)
  - Arteriosclerosis coronary artery [Recovered/Resolved]
  - Hypertension [Unknown]
  - Diarrhoea [Recovered/Resolved]
  - Headache [Recovered/Resolved]
  - Off label use [Not Recovered/Not Resolved]
